FAERS Safety Report 10563971 (Version 1)
Quarter: 2014Q4

REPORT INFORMATION
  Report Type: Spontaneous
  Country: US (occurrence: US)
  Receive Date: 20141104
  Receipt Date: 20141104
  Transmission Date: 20150529
  Serious: Yes (Other)
  Sender: FDA-Public Use
  Company Number: US-BAYER-2014-159868

PATIENT
  Age: 80 Year
  Sex: Female
  Weight: 45 kg

DRUGS (7)
  1. BUDESONIDE. [Concomitant]
     Active Substance: BUDESONIDE
  2. DIGOXIN. [Concomitant]
     Active Substance: DIGOXIN
  3. ALBUTEROL. [Concomitant]
     Active Substance: ALBUTEROL
  4. ALBUTEROL INHALER [Concomitant]
     Active Substance: ALBUTEROL
  5. MILK OF MAGNESIA ORIGINAL [Suspect]
     Active Substance: MAGNESIUM HYDROXIDE
     Indication: CONSTIPATION
     Dosage: 4 TABLESPOON, PRN
     Route: 048
     Dates: start: 20141025
  6. COMBIVENT [Concomitant]
     Active Substance: ALBUTEROL SULFATE\IPRATROPIUM BROMIDE
  7. WARFARIN [Concomitant]
     Active Substance: WARFARIN

REACTIONS (3)
  - Diarrhoea [Unknown]
  - Haematochezia [Not Recovered/Not Resolved]
  - Gastrointestinal motility disorder [Unknown]

NARRATIVE: CASE EVENT DATE: 20141026
